FAERS Safety Report 24467233 (Version 1)
Quarter: 2024Q4

REPORT INFORMATION
  Report Type: Report from Study
  Country: US (occurrence: US)
  Receive Date: 20241018
  Receipt Date: 20241018
  Transmission Date: 20250115
  Serious: No
  Sender: ROCHE
  Company Number: US-ROCHE-3556528

PATIENT
  Age: 79 Year
  Sex: Male

DRUGS (8)
  1. XOLAIR [Suspect]
     Active Substance: OMALIZUMAB
     Indication: Immunology test abnormal
     Dosage: VIAL
     Route: 065
  2. XOLAIR [Suspect]
     Active Substance: OMALIZUMAB
     Indication: Hypersensitivity
  3. XOLAIR [Suspect]
     Active Substance: OMALIZUMAB
     Indication: Influenza like illness
  4. XOLAIR [Suspect]
     Active Substance: OMALIZUMAB
     Indication: Dyspnoea
  5. XOLAIR [Suspect]
     Active Substance: OMALIZUMAB
     Indication: Asthma
  6. XOLAIR [Suspect]
     Active Substance: OMALIZUMAB
     Indication: Interstitial lung disease
  7. XOLAIR [Suspect]
     Active Substance: OMALIZUMAB
     Indication: Eosinophilia
  8. XOLAIR [Suspect]
     Active Substance: OMALIZUMAB
     Indication: Pneumonia

REACTIONS (2)
  - Product prescribing error [Unknown]
  - No adverse event [Unknown]
